FAERS Safety Report 22004773 (Version 1)
Quarter: 2023Q1

REPORT INFORMATION
  Report Type: Spontaneous
  Country: US (occurrence: None)
  Receive Date: 20230217
  Receipt Date: 20230217
  Transmission Date: 20230417
  Serious: Yes (Hospitalization, Other)
  Sender: FDA-Public Use
  Company Number: 2023A035911

PATIENT
  Age: 82 Year
  Sex: Male
  Weight: 79.4 kg

DRUGS (4)
  1. SYMBICORT [Suspect]
     Active Substance: BUDESONIDE\FORMOTEROL FUMARATE DIHYDRATE
     Indication: Asthma
     Dosage: 160/4.5 MCG, 120 INHALATION INHALER, FOR ABOUT THE PAST EIGHT YEARS
     Route: 055
  2. SYMBICORT [Suspect]
     Active Substance: BUDESONIDE\FORMOTEROL FUMARATE DIHYDRATE
     Indication: Asthma
     Dosage: 160/4.5 MCG, 120 INHALATION INHALER, FOR ABOUT THE PAST EIGHT YEARS
     Route: 055
  3. SYMBICORT [Suspect]
     Active Substance: BUDESONIDE\FORMOTEROL FUMARATE DIHYDRATE
     Indication: Asthma
     Dosage: 160/4.5 MCG, 120 INHALATION INHALER, FOR ABOUT THE PAST EIGHT YEARS
     Route: 055
  4. SYMBICORT [Suspect]
     Active Substance: BUDESONIDE\FORMOTEROL FUMARATE DIHYDRATE
     Indication: Asthma
     Dosage: 160/4.5 MCG, 120 INHALATION INHALER, FOR ABOUT THE PAST EIGHT YEARS
     Route: 055

REACTIONS (7)
  - Pulmonary oedema [Unknown]
  - Pneumonia [Recovered/Resolved]
  - COVID-19 [Recovered/Resolved]
  - Eye pruritus [Unknown]
  - Dyspnoea exertional [Unknown]
  - Product prescribing issue [Unknown]
  - Intentional product misuse [Unknown]

NARRATIVE: CASE EVENT DATE: 20220101
